FAERS Safety Report 19129199 (Version 1)
Quarter: 2021Q2

REPORT INFORMATION
  Report Type: Spontaneous
  Country: US (occurrence: US)
  Receive Date: 20210413
  Receipt Date: 20210413
  Transmission Date: 20210717
  Serious: No
  Sender: FDA-Public Use
  Company Number: US-BAYER-2021-120423

PATIENT
  Sex: Female

DRUGS (1)
  1. MIRALAX [Suspect]
     Active Substance: POLYETHYLENE GLYCOL 3350
     Indication: PREGNANCY

REACTIONS (4)
  - Product contamination [None]
  - Product use issue [Unknown]
  - Drug effective for unapproved indication [None]
  - Maternal exposure during pregnancy [Unknown]
